FAERS Safety Report 24810743 (Version 1)
Quarter: 2025Q1

REPORT INFORMATION
  Report Type: Report from Study
  Country: US (occurrence: US)
  Receive Date: 20250106
  Receipt Date: 20250106
  Transmission Date: 20250409
  Serious: No
  Sender: TG THERAPEUTICS
  Company Number: US-TG THERAPEUTICS INC.-TGT004272

PATIENT

DRUGS (1)
  1. UBLITUXIMAB [Suspect]
     Active Substance: UBLITUXIMAB
     Indication: Multiple sclerosis
     Route: 042
     Dates: start: 20241021, end: 20241021

REACTIONS (6)
  - Pain [Unknown]
  - Constipation [Unknown]
  - Abdominal distension [Unknown]
  - Tenderness [Unknown]
  - Dysstasia [Unknown]
  - Diarrhoea [Unknown]
